FAERS Safety Report 14668066 (Version 1)
Quarter: 2018Q1

REPORT INFORMATION
  Report Type: Spontaneous
  Country: CA (occurrence: CA)
  Receive Date: 20180322
  Receipt Date: 20180322
  Transmission Date: 20180509
  Serious: Yes (Hospitalization, Other)
  Sender: FDA-Public Use
  Company Number: CA-BAYER-2018-051457

PATIENT
  Age: 43 Year
  Sex: Female
  Weight: 72.57 kg

DRUGS (1)
  1. MIRENA [Suspect]
     Active Substance: LEVONORGESTREL
     Indication: MENORRHAGIA
     Dosage: 20 MCG/24HR, CONT
     Route: 015

REACTIONS (3)
  - Oophorectomy [Recovered/Resolved]
  - Ovarian neoplasm [Recovered/Resolved]
  - Vaginal odour [Recovered/Resolved]
